FAERS Safety Report 5533131-3 (Version None)
Quarter: 2007Q4

REPORT INFORMATION
  Report Type: 
  Country: None (occurrence: None)
  Receive Date: 20071130
  Receipt Date: 20071130
  Transmission Date: 20080405
  Serious: Yes (Life-Threatening, Hospitalization, Disabling, Other)
  Sender: FDA-Public Use
  Company Number: None

PATIENT
  Sex: Female

DRUGS (1)
  1. ZOMETA [Suspect]

REACTIONS (5)
  - EARLY RETIREMENT [None]
  - HEART RATE IRREGULAR [None]
  - HEPATIC FAILURE [None]
  - INFUSION RELATED REACTION [None]
  - TRACHEOSTOMY [None]
